FAERS Safety Report 9783324 (Version 1)
Quarter: 2013Q4

REPORT INFORMATION
  Report Type: Spontaneous
  Country: US (occurrence: US)
  Receive Date: 20131226
  Receipt Date: 20131226
  Transmission Date: 20140711
  Serious: Yes (Hospitalization)
  Sender: FDA-Public Use
  Company Number: US-BAYER-2013-156662

PATIENT
  Age: 47 Year
  Sex: Female

DRUGS (4)
  1. YASMIN [Suspect]
  2. ZOCOR [Concomitant]
     Dosage: 20 MG, HS
  3. ACCUPRIL [Concomitant]
     Dosage: 10 MG, QD
  4. LOPRESSOR [Concomitant]
     Dosage: 50 MG, BID

REACTIONS (1)
  - Myocardial infarction [Recovered/Resolved]
